FAERS Safety Report 8272163-1 (Version None)
Quarter: 2012Q2

REPORT INFORMATION
  Report Type: 
  Country: None (occurrence: None)
  Receive Date: 20120410
  Receipt Date: 20120319
  Transmission Date: 20120825
  Serious: No
  Sender: FDA-Public Use
  Company Number: US-ASTRAZENECA-2012SE08109

PATIENT
  Age: 47 Year
  Sex: Female
  Weight: 42.2 kg

DRUGS (10)
  1. PREDNISONE TAB [Concomitant]
  2. SYNTHROID [Concomitant]
     Indication: HYPOTHYROIDISM
  3. CHOLESTYRAMINE [Concomitant]
  4. DIPHENOXYLATE HCL + ATROPINE SULFATE [Concomitant]
  5. LODINE [Concomitant]
  6. CALCITIROL [Concomitant]
     Indication: HYPOCALCAEMIA
  7. MESALAMINE [Concomitant]
  8. VANDETANIB [Suspect]
     Indication: THYROID CANCER
     Route: 048
  9. CALCIUM+D [Concomitant]
  10. DICYCLOMINE [Concomitant]

REACTIONS (6)
  - RASH [None]
  - SWELLING FACE [None]
  - HORDEOLUM [None]
  - EYE SWELLING [None]
  - OEDEMA PERIPHERAL [None]
  - STOMATITIS [None]
